FAERS Safety Report 8238697-0 (Version None)
Quarter: 2012Q1

REPORT INFORMATION
  Report Type: 
  Country: None (occurrence: None)
  Receive Date: 20120323
  Receipt Date: 20120315
  Transmission Date: 20120608
  Serious: No
  Sender: FDA-Public Use
  Company Number: WAES 1203USA02406

PATIENT

DRUGS (1)
  1. PRINIVIL [Suspect]
     Indication: HYPERTENSION
     Dosage: PO
     Route: 048

REACTIONS (3)
  - ANGIOEDEMA [None]
  - UPPER RESPIRATORY TRACT INFECTION [None]
  - COUGH [None]
